FAERS Safety Report 5771414-2 (Version None)
Quarter: 2008Q2

REPORT INFORMATION
  Report Type: 
  Country: None (occurrence: None)
  Receive Date: 20080610
  Receipt Date: 20080528
  Transmission Date: 20081010
  Serious: Yes (Other)
  Sender: FDA-Public Use
  Company Number: 2008AL006016

PATIENT
  Age: 82 Week
  Sex: Female
  Weight: 56.246 kg

DRUGS (8)
  1. DIGOXIN [Suspect]
     Indication: ARRHYTHMIA
     Dosage: 0.125MG 1/2 AM - 1/2 PM
     Dates: end: 20080430
  2. PLAVIX [Concomitant]
  3. ASPIRIN [Concomitant]
  4. SYNTHROID [Concomitant]
  5. ATENOLOL [Concomitant]
  6. LANOXIN [Concomitant]
  7. NEXIUM [Concomitant]
  8. LASIX [Concomitant]

REACTIONS (4)
  - FATIGUE [None]
  - FEELING ABNORMAL [None]
  - MUSCULAR WEAKNESS [None]
  - TRANSIENT ISCHAEMIC ATTACK [None]
